FAERS Safety Report 19997792 (Version 2)
Quarter: 2021Q4

REPORT INFORMATION
  Report Type: Spontaneous
  Country: US (occurrence: US)
  Receive Date: 20211026
  Receipt Date: 20211108
  Transmission Date: 20220304
  Serious: No
  Sender: FDA-Public Use
  Company Number: US-GW PHARMA-202110USGW05200

PATIENT

DRUGS (2)
  1. EPIDIOLEX [Suspect]
     Active Substance: CANNABIDIOL
     Indication: Lennox-Gastaut syndrome
     Dosage: 150 MILLIGRAM, FREQUENCY NOT REPORTED
     Route: 048
     Dates: start: 202108, end: 202110
  2. EPIDIOLEX [Suspect]
     Active Substance: CANNABIDIOL
     Dosage: 150 MILLIGRAM, FREQUENCY NOT REPORTED
     Route: 048
     Dates: start: 202110

REACTIONS (2)
  - Fall [Unknown]
  - Crying [Unknown]

NARRATIVE: CASE EVENT DATE: 20211001
